FAERS Safety Report 14173326 (Version 1)
Quarter: 2017Q4

REPORT INFORMATION
  Report Type: Report from Study
  Country: US (occurrence: US)
  Receive Date: 20171109
  Receipt Date: 20171109
  Transmission Date: 20180321
  Serious: No
  Sender: FDA-Public Use
  Company Number: US-ACADIA PHARMACEUTICALS INC.-ACA-2017-005370

PATIENT
  Age: 77 Year
  Sex: Male

DRUGS (3)
  1. NUPLAZID [Suspect]
     Active Substance: PIMAVANSERIN TARTRATE
     Indication: DELUSION
  2. NUPLAZID [Suspect]
     Active Substance: PIMAVANSERIN TARTRATE
     Indication: PARKINSON^S DISEASE PSYCHOSIS
  3. NUPLAZID [Suspect]
     Active Substance: PIMAVANSERIN TARTRATE
     Indication: HALLUCINATION
     Dosage: 34 MG, QD
     Route: 048
     Dates: start: 20170720

REACTIONS (8)
  - Ear discomfort [Unknown]
  - Abdominal distension [Unknown]
  - Headache [Unknown]
  - Abdominal discomfort [Unknown]
  - Confusional state [Unknown]
  - Blood pressure increased [Unknown]
  - Limb discomfort [Unknown]
  - Hallucination [Unknown]

NARRATIVE: CASE EVENT DATE: 201707
